FAERS Safety Report 23023335 (Version 2)
Quarter: 2023Q4

REPORT INFORMATION
  Report Type: Spontaneous
  Country: ZA (occurrence: ZA)
  Receive Date: 20231003
  Receipt Date: 20231107
  Transmission Date: 20240109
  Serious: Yes (Death)
  Sender: FDA-Public Use
  Company Number: ZA-BAYER-2023A136372

PATIENT
  Age: 81 Year
  Sex: Male

DRUGS (2)
  1. XOFIGO [Suspect]
     Active Substance: RADIUM RA-223 DICHLORIDE
     Indication: Hormone-refractory prostate cancer
     Dosage: UNK
     Dates: start: 2023, end: 2023
  2. XOFIGO [Suspect]
     Active Substance: RADIUM RA-223 DICHLORIDE
     Indication: Hormone-refractory prostate cancer
     Dosage: UNK
     Dates: start: 20230905, end: 20230905

REACTIONS (1)
  - Prostate cancer [Fatal]
